FAERS Safety Report 23530302 (Version 1)
Quarter: 2024Q1

REPORT INFORMATION
  Report Type: Spontaneous
  Country: FR (occurrence: FR)
  Receive Date: 20240216
  Receipt Date: 20240216
  Transmission Date: 20240410
  Serious: Yes (Other)
  Sender: FDA-Public Use
  Company Number: FR-SERVIER-S24001145

PATIENT
  Age: 47 Year
  Sex: Male
  Weight: 85 kg

DRUGS (6)
  1. IVABRADINE [Suspect]
     Active Substance: IVABRADINE
     Indication: Heart rate
     Dosage: 15 MILLIGRAM
     Route: 048
     Dates: start: 20231222, end: 20231223
  2. LOVENOX [Concomitant]
     Active Substance: ENOXAPARIN SODIUM
     Indication: Prophylaxis
     Dosage: 400 INTERNATIONAL UNIT
     Route: 058
     Dates: start: 20231222
  3. CEFOTAXIME [Concomitant]
     Active Substance: CEFOTAXIME SODIUM
     Indication: Haemophilus infection
     Dosage: 6 GRAM
     Route: 040
     Dates: start: 20231222, end: 20231226
  4. SPIRAMYCIN [Concomitant]
     Active Substance: SPIRAMYCIN
     Indication: Prophylaxis
     Dosage: 9 MEGA-INTERNATIONAL UNIT
     Route: 040
     Dates: start: 20231222, end: 20231225
  5. NOREPINEPHRINE [Concomitant]
     Active Substance: NOREPINEPHRINE
     Indication: Hypotension
     Dosage: UNK
     Route: 040
     Dates: start: 20231222, end: 20231226
  6. HYDROCORTISONE [Concomitant]
     Active Substance: HYDROCORTISONE
     Indication: Septic shock
     Dosage: 200 MILLIGRAM
     Route: 040
     Dates: start: 20231222, end: 20231223

REACTIONS (2)
  - Bradycardia [Recovered/Resolved]
  - Epilepsy [Recovered/Resolved]

NARRATIVE: CASE EVENT DATE: 20231223
